FAERS Safety Report 5638514-9 (Version None)
Quarter: 2008Q1

REPORT INFORMATION
  Report Type: 
  Country: None (occurrence: None)
  Receive Date: 20080226
  Receipt Date: 20070302
  Transmission Date: 20080703
  Serious: No
  Sender: FDA-Public Use
  Company Number: A0641604A

PATIENT
  Age: 39 Year
  Sex: Male

DRUGS (7)
  1. IMITREX [Suspect]
     Indication: MIGRAINE
     Dosage: 6MG AS REQUIRED
     Route: 058
     Dates: start: 20070216
  2. VERAPAMIL [Concomitant]
  3. PROTONIX [Concomitant]
  4. DEPAKOTE [Concomitant]
  5. STADOL [Concomitant]
  6. PERCOCET [Concomitant]
  7. FLONASE [Concomitant]

REACTIONS (3)
  - ABDOMINAL PAIN [None]
  - CHEST PAIN [None]
  - PHARYNGOLARYNGEAL PAIN [None]
